FAERS Safety Report 6257727-9 (Version None)
Quarter: 2009Q3

REPORT INFORMATION
  Report Type: 
  Country: None (occurrence: None)
  Receive Date: 20090706
  Receipt Date: 20090630
  Transmission Date: 20100115
  Serious: Yes (Life-Threatening, Hospitalization)
  Sender: FDA-Public Use
  Company Number: JP-SANOFI-SYNTHELABO-A01200906835

PATIENT
  Sex: Male

DRUGS (7)
  1. BIOFERMIN [Concomitant]
     Dosage: UNK
     Dates: start: 20090512
  2. DOGMATYL [Concomitant]
     Dosage: UNK
     Dates: start: 20090512
  3. ISOVORIN [Suspect]
     Dosage: UNK
     Route: 041
     Dates: start: 20090526, end: 20090526
  4. FLUOROURACIL [Suspect]
     Dosage: UNK
     Route: 041
     Dates: start: 20090526, end: 20090526
  5. AVASTIN [Suspect]
     Route: 041
     Dates: start: 20090526, end: 20090526
  6. ELPLAT [Suspect]
     Indication: RECTAL CANCER METASTATIC
     Dosage: UNK
     Route: 041
     Dates: start: 20090526, end: 20090526
  7. DECADRON [Concomitant]
     Dosage: 8 MG/DAY ON DAY ONE OF MFOLFOX THEN EVERY 2 WEEKS
     Dates: start: 20081224, end: 20090526

REACTIONS (3)
  - DIARRHOEA [None]
  - EPISTAXIS [None]
  - PERITONITIS [None]
